FAERS Safety Report 5353863-X (Version None)
Quarter: 2007Q2

REPORT INFORMATION
  Report Type: 
  Country: None (occurrence: None)
  Receive Date: 20070608
  Receipt Date: 20070530
  Transmission Date: 20071010
  Serious: Yes (Hospitalization)
  Sender: FDA-Public Use
  Company Number: 0104-3081

PATIENT
  Age: 71 Year
  Sex: Male
  Weight: 117.9352 kg

DRUGS (4)
  1. ADVICOR [Suspect]
     Indication: BLOOD CHOLESTEROL INCREASED
     Dosage: 1 TABLET(S) QHS PO
     Route: 048
     Dates: start: 20070201, end: 20070501
  2. ACTOS [Concomitant]
  3. SYNTHROID [Concomitant]
  4. TOPROL-XL [Concomitant]

REACTIONS (11)
  - BACK PAIN [None]
  - BLOOD PRESSURE DECREASED [None]
  - BURNING SENSATION [None]
  - FALL [None]
  - FLUSHING [None]
  - HEAD INJURY [None]
  - HEADACHE [None]
  - PAIN IN EXTREMITY [None]
  - PARAESTHESIA [None]
  - PRURITUS [None]
  - SYNCOPE [None]
